FAERS Safety Report 7578131-7 (Version None)
Quarter: 2011Q2

REPORT INFORMATION
  Report Type: 
  Country: None (occurrence: None)
  Receive Date: 20110628
  Receipt Date: 20110607
  Transmission Date: 20111010
  Serious: Yes (Hospitalization)
  Sender: FDA-Public Use
  Company Number: A0870675A

PATIENT
  Age: 42 Year
  Sex: Female

DRUGS (8)
  1. AVANDIA [Suspect]
     Route: 048
     Dates: end: 20021101
  2. ZESTORETIC [Concomitant]
  3. TYLENOL-500 [Concomitant]
  4. GLUCOPHAGE [Concomitant]
  5. AVANDAMET [Suspect]
     Route: 048
  6. ENALAPRIL MALEATE [Concomitant]
  7. ASPIRIN [Concomitant]
  8. VASOTEC [Concomitant]

REACTIONS (1)
  - MYOCARDIAL INFARCTION [None]
